FAERS Safety Report 5823557-2 (Version None)
Quarter: 2008Q3

REPORT INFORMATION
  Report Type: 
  Country: None (occurrence: None)
  Receive Date: 20080725
  Receipt Date: 20080708
  Transmission Date: 20090109
  Serious: No
  Sender: FDA-Public Use
  Company Number: US-BOEHRINGER INGELHEIM GMBH, GERMANY-2008-BP-09555BP

PATIENT
  Sex: Male

DRUGS (3)
  1. COMBIVENT [Suspect]
     Indication: ASTHMA
     Route: 055
     Dates: start: 20060101
  2. FLUTICASONE PROPIONATE [Concomitant]
     Indication: ASTHMA
  3. INDERAL [Concomitant]
     Indication: FAMILIAL TREMOR

REACTIONS (2)
  - RESPIRATORY TRACT IRRITATION [None]
  - SINUSITIS [None]
